FAERS Safety Report 8132610-2 (Version None)
Quarter: 2012Q1

REPORT INFORMATION
  Report Type: 
  Country: None (occurrence: None)
  Receive Date: 20120213
  Receipt Date: 20120207
  Transmission Date: 20120608
  Serious: Yes (Death, Hospitalization)
  Sender: FDA-Public Use
  Company Number: US-GLAXOSMITHKLINE-A0915591A

PATIENT
  Age: 68 Year
  Sex: Male

DRUGS (1)
  1. AVANDIA [Suspect]
     Indication: DIABETES MELLITUS
     Route: 048
     Dates: start: 19990101, end: 20050401

REACTIONS (8)
  - HYPOTENSION [None]
  - MYOCARDIAL INFARCTION [None]
  - ENDOCARDITIS [None]
  - SEPTIC SHOCK [None]
  - IMPLANTABLE DEFIBRILLATOR INSERTION [None]
  - SURGERY [None]
  - CARDIAC FAILURE CONGESTIVE [None]
  - CORONARY ARTERY DISEASE [None]
